FAERS Safety Report 17301507 (Version 1)
Quarter: 2020Q1

REPORT INFORMATION
  Report Type: Spontaneous
  Country: US (occurrence: US)
  Receive Date: 20200106
  Receipt Date: 20200106
  Transmission Date: 20200409
  Serious: Yes (Other)
  Sender: FDA-Public Use
  Company Number: None

PATIENT
  Age: 19 Year
  Sex: Male
  Weight: 64 kg

DRUGS (4)
  1. TOMPAMAX [Concomitant]
  2. CLOBAZAM. [Concomitant]
     Active Substance: CLOBAZAM
  3. OXCARBAZEPINE 600MG TABS [Suspect]
     Active Substance: OXCARBAZEPINE
     Indication: PARTIAL SEIZURES
     Route: 048
     Dates: start: 201906
  4. KEPPRA [Concomitant]
     Active Substance: LEVETIRACETAM

REACTIONS (2)
  - Diarrhoea [None]
  - Product substitution issue [None]
